FAERS Safety Report 11409763 (Version 1)
Quarter: 2015Q3

REPORT INFORMATION
  Report Type: Spontaneous
  Country: US (occurrence: None)
  Receive Date: 20150820
  Receipt Date: 20150820
  Transmission Date: 20151125
  Serious: Yes (Other)
  Sender: FDA-Public Use
  Company Number: None

PATIENT
  Age: 39 Year
  Sex: Female
  Weight: 90.72 kg

DRUGS (2)
  1. OMALIZUMAB [Suspect]
     Active Substance: OMALIZUMAB
     Indication: SKIN TEST POSITIVE
     Dosage: 750MG, EVERY 2 WEEKS
     Route: 058
     Dates: start: 20150310, end: 20150721
  2. OMALIZUMAB [Suspect]
     Active Substance: OMALIZUMAB
     Indication: ASTHMA
     Dosage: 750MG, EVERY 2 WEEKS
     Route: 058
     Dates: start: 20150310, end: 20150721

REACTIONS (2)
  - Drug ineffective [None]
  - Chest pain [None]

NARRATIVE: CASE EVENT DATE: 20150808
